FAERS Safety Report 10662125 (Version 2)
Quarter: 2015Q1

REPORT INFORMATION
  Report Type: Spontaneous
  Country: US (occurrence: US)
  Receive Date: 20141218
  Receipt Date: 20150217
  Transmission Date: 20150720
  Serious: No
  Sender: FDA-Public Use
  Company Number: US-PFIZER INC-2014343595

PATIENT
  Age: 61 Year
  Sex: Female

DRUGS (2)
  1. INLYTA [Suspect]
     Active Substance: AXITINIB
     Dosage: 5 MG, 2X/DAY
     Route: 048
     Dates: start: 20141112
  2. INLYTA [Suspect]
     Active Substance: AXITINIB
     Indication: RENAL CELL CARCINOMA
     Dosage: 5 MG, BID
     Dates: start: 201411

REACTIONS (9)
  - Fatigue [Recovering/Resolving]
  - Confusional state [Unknown]
  - Asthenia [Unknown]
  - Speech disorder [Unknown]
  - Mucosal inflammation [Recovered/Resolved]
  - Vision blurred [Unknown]
  - Blood pressure increased [Unknown]
  - Dyspnoea [Unknown]
  - Glossodynia [Unknown]
